FAERS Safety Report 6262507-4 (Version None)
Quarter: 2009Q3

REPORT INFORMATION
  Report Type: 
  Country: None (occurrence: None)
  Receive Date: 20090709
  Receipt Date: 20090626
  Transmission Date: 20100115
  Serious: Yes (Other)
  Sender: FDA-Public Use
  Company Number: FR-MYLANLABS-2009S1011343

PATIENT
  Age: 37 Year
  Sex: Male
  Weight: 70 kg

DRUGS (2)
  1. KETOPROFEN [Suspect]
     Indication: ARTHRALGIA
     Route: 061
     Dates: start: 20090604, end: 20090605
  2. AERIUS [Concomitant]

REACTIONS (3)
  - APPLICATION SITE BURN [None]
  - BURNS SECOND DEGREE [None]
  - DERMATITIS BULLOUS [None]
